FAERS Safety Report 16743870 (Version 1)
Quarter: 2019Q3

REPORT INFORMATION
  Report Type: Spontaneous
  Country: US (occurrence: US)
  Receive Date: 20190827
  Receipt Date: 20190827
  Transmission Date: 20191005
  Serious: No
  Sender: FDA-Public Use
  Company Number: US-JNJFOC-20190821292

PATIENT
  Age: 70 Year
  Sex: Male
  Weight: 110.78 kg

DRUGS (3)
  1. MELOXICAM. [Concomitant]
     Active Substance: MELOXICAM
     Indication: ANALGESIC THERAPY
     Dosage: 15 MG DAILY
     Route: 065
  2. TYLENOL [Suspect]
     Active Substance: ACETAMINOPHEN
     Indication: ARTHRALGIA
  3. TYLENOL [Suspect]
     Active Substance: ACETAMINOPHEN
     Indication: BURSITIS
     Dosage: 2 CAPLETS EVERY 4-6 HOURS
     Route: 048

REACTIONS (1)
  - Inappropriate schedule of product administration [Unknown]
